FAERS Safety Report 7041914-6 (Version None)
Quarter: 2010Q4

REPORT INFORMATION
  Report Type: 
  Country: None (occurrence: None)
  Receive Date: 20101013
  Receipt Date: 20100419
  Transmission Date: 20110411
  Serious: No
  Sender: FDA-Public Use
  Company Number: AE-ASTRAZENECA-2010SE14003

PATIENT
  Age: 84 Year
  Sex: Female

DRUGS (1)
  1. SYMBICORT [Suspect]
     Dosage: 80/4.5 MCG UNKNOWN FREQUENCY
     Route: 055

REACTIONS (2)
  - ASTHMATIC CRISIS [None]
  - DRUG DOSE OMISSION [None]
